FAERS Safety Report 7446503-7 (Version None)
Quarter: 2011Q2

REPORT INFORMATION
  Report Type: 
  Country: None (occurrence: None)
  Receive Date: 20110429
  Receipt Date: 20110110
  Transmission Date: 20111010
  Serious: No
  Sender: FDA-Public Use
  Company Number: US-ASTRAZENECA-2010SE32439

PATIENT
  Sex: Female

DRUGS (9)
  1. PRILOSEC [Concomitant]
  2. PERCOCET [Concomitant]
  3. NEURONTIN [Concomitant]
  4. FLEXERIL [Concomitant]
  5. NAPROXEN (ALEVE) [Concomitant]
  6. ZOMIG [Concomitant]
  7. NEXIUM [Suspect]
     Route: 048
  8. SYNTHROID [Concomitant]
  9. RHINOCORT [Concomitant]

REACTIONS (4)
  - DRUG DOSE OMISSION [None]
  - ANAEMIA [None]
  - SENSATION OF FOREIGN BODY [None]
  - ABDOMINAL PAIN UPPER [None]
